FAERS Safety Report 9221110 (Version 2)
Quarter: 2013Q2

REPORT INFORMATION
  Report Type: Spontaneous
  Country: JP (occurrence: JP)
  Receive Date: 20130409
  Receipt Date: 20130416
  Transmission Date: 20140414
  Serious: Yes (Other)
  Sender: FDA-Public Use
  Company Number: JP-UCBSA-082316

PATIENT
  Age: 23 Year
  Sex: Female
  Weight: 31.9 kg

DRUGS (6)
  1. E KEPPRA [Suspect]
     Indication: EPILEPSY
     Route: 048
     Dates: start: 20121213, end: 20121225
  2. E KEPPRA [Suspect]
     Indication: EPILEPSY
     Route: 048
     Dates: start: 20121205, end: 20121212
  3. DEPAKENE [Concomitant]
     Indication: EPILEPSY
     Dosage: TOTAL DAILY DOSE: 600 MG
     Route: 048
  4. BENZALIN [Concomitant]
     Indication: EPILEPSY
     Dosage: TOTAL DAILY DOSE: 5 MG
     Route: 048
     Dates: start: 20120315
  5. TAKEPRON [Concomitant]
     Indication: GASTRITIS
     Dosage: TOTAL DAILY DOSE: 15 MG
     Route: 048
     Dates: start: 20060406
  6. MUCODYNE [Concomitant]
     Indication: PRODUCTIVE COUGH
     Dosage: TOTAL DAILY DOSE: 500 MG
     Route: 048
     Dates: start: 20080117

REACTIONS (2)
  - Skin ulcer [Recovered/Resolved with Sequelae]
  - Stomatitis [Recovered/Resolved]
